FAERS Safety Report 4615692-1 (Version None)
Quarter: 2005Q1

REPORT INFORMATION
  Report Type: 
  Country: None (occurrence: None)
  Receive Date: 20050317
  Receipt Date: 20050302
  Transmission Date: 20050727
  Serious: Yes (Death)
  Sender: FDA-Public Use
  Company Number: MEDI-0002978

PATIENT
  Age: 23 Year
  Sex: Male

DRUGS (1)
  1. SYNAGIS [Suspect]
     Indication: RESPIRATORY SYNCYTIAL VIRUS INFECTION
     Dosage: 1 IN 1 D
     Dates: start: 20050216, end: 20050217

REACTIONS (6)
  - CHRONIC RESPIRATORY FAILURE [None]
  - CULTURE POSITIVE [None]
  - ENTEROCOCCAL INFECTION [None]
  - HYPOTENSION [None]
  - SEPSIS [None]
  - STAPHYLOCOCCAL INFECTION [None]
